FAERS Safety Report 6743678-X (Version None)
Quarter: 2010Q2

REPORT INFORMATION
  Report Type: 
  Country: None (occurrence: None)
  Receive Date: 20100526
  Receipt Date: 20100526
  Transmission Date: 20101027
  Serious: Yes (Other)
  Sender: FDA-Public Use
  Company Number: None

PATIENT
  Age: 23 Year
  Sex: Female
  Weight: 49.8957 kg

DRUGS (7)
  1. RECLAST [Suspect]
     Indication: OSTEOPOROSIS
     Dosage: 5 MG 1 PER YEAR IV
     Route: 042
     Dates: start: 20100415
  2. GEODON [Concomitant]
  3. PROZAC [Concomitant]
  4. AMBIEN [Concomitant]
  5. CLONOPIN [Concomitant]
  6. PROPANEROL [Concomitant]
  7. VITAMIN D [Concomitant]

REACTIONS (12)
  - BONE PAIN [None]
  - DECREASED APPETITE [None]
  - DEPRESSION [None]
  - EDUCATIONAL PROBLEM [None]
  - FUNGAL INFECTION [None]
  - IMPAIRED WORK ABILITY [None]
  - INFLUENZA LIKE ILLNESS [None]
  - INSOMNIA [None]
  - MUSCLE SPASMS [None]
  - MYALGIA [None]
  - VOMITING [None]
  - WEIGHT DECREASED [None]
